FAERS Safety Report 5747536-9 (Version None)
Quarter: 2008Q2

REPORT INFORMATION
  Report Type: 
  Country: None (occurrence: None)
  Receive Date: 20080523
  Receipt Date: 20080509
  Transmission Date: 20081010
  Serious: Yes (Death, Hospitalization, Other)
  Sender: FDA-Public Use
  Company Number: US-ELI_LILLY_AND_COMPANY-US200711002452

PATIENT
  Sex: Female
  Weight: 43.084 kg

DRUGS (14)
  1. FORTEO [Suspect]
     Dosage: UNK, UNK
     Dates: start: 20060501
  2. DIGOXIN [Concomitant]
     Dosage: 0.125 MEQ, QOD
  3. AMIODARONE [Concomitant]
     Dosage: 200 MEQ, DAILY (1/D)
     Route: 048
  4. COUMADIN [Concomitant]
     Dosage: 2 MG, DAILY (1/D)
     Route: 048
  5. SYNTHROID [Concomitant]
     Dosage: 100 UG, DAILY (1/D)
     Route: 048
  6. PROTONIX [Concomitant]
     Dosage: 40 MG, DAILY (1/D)
     Route: 048
  7. TOPAMAX [Concomitant]
     Dosage: 50 MG, EACH EVENING
  8. CALCIUM [Concomitant]
     Dosage: 1 D/F, 2/D
  9. VITAMIN D [Concomitant]
     Dosage: 1 D/F, DAILY (1/D)
  10. LIPITOR [Concomitant]
     Dosage: 1 D/F, DAILY (1/D)
     Route: 048
  11. CYMBALTA [Concomitant]
     Dosage: 6 MG, DAILY (1/D)
  12. FENTANYL [Concomitant]
     Dosage: 12.5 MG, OTHER
     Route: 048
  13. PHENERGAN [Concomitant]
     Dosage: 25 MG, AS NEEDED
  14. LORTAB [Concomitant]
     Dosage: 10/325 Q4-6H PRN/ 2-4 PER DAY

REACTIONS (3)
  - EATING DISORDER [None]
  - MALAISE [None]
  - SARCOMA [None]
